FAERS Safety Report 20457619 (Version 1)
Quarter: 2022Q1

REPORT INFORMATION
  Report Type: Spontaneous
  Country: None (occurrence: GB)
  Receive Date: 20220210
  Receipt Date: 20220210
  Transmission Date: 20220423
  Serious: Yes (Other)
  Sender: FDA-Public Use
  Company Number: GB-Canton Laboratories, LLC-2125776

PATIENT
  Age: 26 Year
  Sex: Female

DRUGS (9)
  1. NAPROSYN [Suspect]
     Active Substance: NAPROXEN
     Indication: Ill-defined disorder
     Route: 065
     Dates: start: 20211222
  2. BETAMETHASONE VALERATE [Concomitant]
     Active Substance: BETAMETHASONE VALERATE
  3. CETRABEN EMOLLIENT CREAM [Concomitant]
     Dates: start: 20210415
  4. BECLOMETHASONE DIPROPIONATE [Concomitant]
     Active Substance: BECLOMETHASONE DIPROPIONATE
     Route: 048
  5. FEXOFENADINE [Concomitant]
     Active Substance: FEXOFENADINE HYDROCHLORIDE
     Dates: start: 20210415
  6. OILATUM [Concomitant]
     Dates: start: 20210415
  7. OMEPRAZOLE [Concomitant]
     Active Substance: OMEPRAZOLE
     Dates: start: 20220118
  8. OPTICROM [Concomitant]
     Active Substance: CROMOLYN SODIUM
     Dates: start: 20210831
  9. ALBUTEROL [Concomitant]
     Active Substance: ALBUTEROL
     Dates: start: 20210415

REACTIONS (2)
  - Chest discomfort [Recovered/Resolved]
  - Abdominal pain upper [Recovered/Resolved]

NARRATIVE: CASE EVENT DATE: 20220125
